FAERS Safety Report 23109459 (Version 1)
Quarter: 2023Q4

REPORT INFORMATION
  Report Type: Spontaneous
  Country: None (occurrence: GB)
  Receive Date: 20231026
  Receipt Date: 20231026
  Transmission Date: 20240110
  Serious: Yes (Hospitalization)
  Sender: FDA-Public Use
  Company Number: GB-B.Braun Medical Inc.-2147481

PATIENT
  Age: 68 Year
  Sex: Male

DRUGS (12)
  1. ACETAMINOPHEN [Suspect]
     Active Substance: ACETAMINOPHEN
  2. CALCIUM [Suspect]
     Active Substance: CALCIUM
  3. HEPARIN [Suspect]
     Active Substance: HEPARIN SODIUM
  4. MAGNESIUM [Suspect]
     Active Substance: MAGNESIUM
  5. MEROPENEM [Suspect]
     Active Substance: MEROPENEM
  6. LACTATED RINGERS SOLUTION [Suspect]
     Active Substance: CALCIUM CHLORIDE\POTASSIUM CHLORIDE\SODIUM CHLORIDE\SODIUM LACTATE
  7. POTASSIUM CHLORIDE [Suspect]
     Active Substance: POTASSIUM CHLORIDE
  8. LEVOFLOXACIN [Concomitant]
     Active Substance: LEVOFLOXACIN
  9. PROPOFOL [Concomitant]
     Active Substance: PROPOFOL
  10. ALFENTANIL [Concomitant]
     Active Substance: ALFENTANIL
  11. PIPERACILLIN SODIUM\TAZOBACTAM SODIUM [Concomitant]
     Active Substance: PIPERACILLIN SODIUM\TAZOBACTAM SODIUM
  12. DOXYCYCLINE [Concomitant]
     Active Substance: DOXYCYCLINE

REACTIONS (1)
  - Methaemoglobinaemia [None]
